FAERS Safety Report 6706601-X (Version None)
Quarter: 2010Q2

REPORT INFORMATION
  Report Type: 
  Country: None (occurrence: None)
  Receive Date: 20100503
  Receipt Date: 20100423
  Transmission Date: 20101027
  Serious: Yes (Hospitalization)
  Sender: FDA-Public Use
  Company Number: CL-ROCHE-695718

PATIENT
  Sex: Male
  Weight: 72 kg

DRUGS (11)
  1. INTERFERON ALFA [Suspect]
     Route: 058
     Dates: start: 20090727, end: 20100202
  2. BEVACIZUMAB [Suspect]
     Route: 042
     Dates: start: 20090727, end: 20100202
  3. TRAMADOL HCL [Concomitant]
     Indication: PAIN
     Route: 048
     Dates: start: 20090818
  4. KETOROLAC TROMETHAMINE [Concomitant]
     Indication: PAIN MANAGEMENT
     Dates: start: 20100211, end: 20100212
  5. ONDANSETRON [Concomitant]
     Dates: start: 20100211, end: 20100212
  6. PARECOXIB SODIUM [Concomitant]
     Indication: PAIN MANAGEMENT
     Dates: start: 20100211, end: 20100212
  7. METAMIZOL [Concomitant]
     Indication: PAIN MANAGEMENT
     Dates: start: 20100211, end: 20100212
  8. TRAMADOL HCL [Concomitant]
     Indication: PAIN MANAGEMENT
     Route: 042
     Dates: start: 20100211, end: 20100212
  9. KETOPROFEN [Concomitant]
  10. BUPIVACAINE HCL [Concomitant]
  11. FENTANYL [Concomitant]

REACTIONS (1)
  - ANAL FISTULA [None]
